FAERS Safety Report 6623518-X (Version None)
Quarter: 2010Q1

REPORT INFORMATION
  Report Type: 
  Country: None (occurrence: None)
  Receive Date: 20100224
  Receipt Date: 20100217
  Transmission Date: 20100710
  Serious: Yes (Death)
  Sender: FDA-Public Use
  Company Number: 2010022079

PATIENT
  Sex: Male

DRUGS (12)
  1. VIVAGLOBIN [Suspect]
     Dosage: (2.65 G, 16ML (2.65 G) WEEKLY VIA 2 SITES SUBCUTANEOUS), (3ML VIAL SUBCUTANEOUS),(10 ML SUBCUTANEOUS
     Route: 058
     Dates: start: 20080601, end: 20100201
  2. VIVAGLOBIN [Suspect]
  3. BACTROBAN [Concomitant]
  4. LAMICTAL [Concomitant]
  5. KETOCONAZOLE [Concomitant]
  6. ZONISAMIDE [Concomitant]
  7. TRIAMCINOLONE [Concomitant]
  8. NYSTATIN + TRIAMCINOLONE (NYSTATIN W/TRIAMCINOLONE) [Concomitant]
  9. PROTOPIC [Concomitant]
  10. NYAMYC (NYSTATIN) [Concomitant]
  11. OFLOXACIN EAR DROPS (OFLOXACIN) [Concomitant]
  12. CHILDREN'S MOTRIN [Concomitant]

REACTIONS (1)
  - DEATH [None]
